FAERS Safety Report 15827876 (Version 1)
Quarter: 2019Q1

REPORT INFORMATION
  Report Type: Spontaneous
  Country: US (occurrence: US)
  Receive Date: 20190115
  Receipt Date: 20190115
  Transmission Date: 20190417
  Serious: No
  Sender: FDA-Public Use
  Company Number: US-BAUSCH-BL-2015-016996

PATIENT
  Age: 52 Year
  Sex: Male
  Weight: 114.41 kg

DRUGS (3)
  1. ZYLET [Suspect]
     Active Substance: LOTEPREDNOL ETABONATE\TOBRAMYCIN
     Indication: LACRIMATION INCREASED
     Dosage: ONE DROP FOUR TIMES DAILY FOR 1 WEEK, THEN ONE DROP TWICE DAILY
     Route: 047
     Dates: start: 201506
  2. AMOXICILLIN-CLAVULANATE [Suspect]
     Active Substance: AMOXICILLIN\CLAVULANIC ACID
     Indication: EAR INFECTION
     Route: 065
     Dates: start: 201506, end: 201506
  3. ZYLET [Suspect]
     Active Substance: LOTEPREDNOL ETABONATE\TOBRAMYCIN
     Dosage: ONE DROP FOUR TIMES DAILY FOR 1 WEEK, THEN ONE DROP TWICE DAILY
     Route: 047
     Dates: start: 201506

REACTIONS (2)
  - Ear infection [Not Recovered/Not Resolved]
  - Drug ineffective [Unknown]

NARRATIVE: CASE EVENT DATE: 201506
